FAERS Safety Report 25275540 (Version 2)
Quarter: 2025Q3

REPORT INFORMATION
  Report Type: Report from Study
  Country: US (occurrence: US)
  Receive Date: 20250506
  Receipt Date: 20250711
  Transmission Date: 20251020
  Serious: Yes (Hospitalization)
  Sender: NOVARTIS
  Company Number: US-002147023-NVSC2025US072800

PATIENT
  Sex: Male

DRUGS (2)
  1. KESIMPTA [Suspect]
     Active Substance: OFATUMUMAB
     Indication: Product used for unknown indication
     Route: 065
  2. METOPROLOL [Concomitant]
     Active Substance: METOPROLOL
     Indication: Product used for unknown indication
     Route: 065

REACTIONS (7)
  - Pulmonary oedema [Unknown]
  - Chest pain [Unknown]
  - Loss of consciousness [Unknown]
  - Chronic obstructive pulmonary disease [Unknown]
  - Dizziness [Unknown]
  - Weight increased [Unknown]
  - Product dose omission issue [Unknown]
